FAERS Safety Report 6554285-6 (Version None)
Quarter: 2010Q1

REPORT INFORMATION
  Report Type: 
  Country: None (occurrence: None)
  Receive Date: 20100127
  Receipt Date: 20100122
  Transmission Date: 20100710
  Serious: Yes (Death, Hospitalization)
  Sender: FDA-Public Use
  Company Number: US-CELGENEUS-163-21880-09120458

PATIENT
  Sex: Male

DRUGS (3)
  1. REVLIMID [Suspect]
     Indication: MULTIPLE MYELOMA
     Route: 048
     Dates: start: 20091113, end: 20091117
  2. REVLIMID [Suspect]
     Route: 048
     Dates: start: 20071022, end: 20090101
  3. REVLIMID [Suspect]
     Route: 048
     Dates: start: 20070801

REACTIONS (2)
  - NEUTROPENIA [None]
  - PNEUMONIA [None]
